FAERS Safety Report 5260753-X (Version None)
Quarter: 2007Q1

REPORT INFORMATION
  Report Type: 
  Country: None (occurrence: None)
  Receive Date: 20070309
  Receipt Date: 20070222
  Transmission Date: 20070707
  Serious: Yes (Hospitalization)
  Sender: FDA-Public Use
  Company Number: AU-AMGEN-US210450

PATIENT
  Sex: Male

DRUGS (9)
  1. PANITUMUMAB [Suspect]
     Indication: COLORECTAL CANCER
     Route: 042
     Dates: start: 20060927
  2. ZANIDIP [Concomitant]
     Route: 048
     Dates: start: 20060801
  3. PANTOPRAZOLE SODIUM [Concomitant]
     Route: 048
     Dates: start: 20060801
  4. RECTINOL [Concomitant]
     Route: 065
     Dates: start: 20061110
  5. MAXOLON [Concomitant]
     Route: 048
     Dates: start: 20070108
  6. DIFFLAM [Concomitant]
     Route: 048
     Dates: start: 20070108
  7. FLUOROURACIL [Concomitant]
     Route: 042
  8. IRINOTECAN HCL [Concomitant]
     Route: 042
  9. LEUCOVORIN CALCIUM [Concomitant]
     Route: 042

REACTIONS (1)
  - PYREXIA [None]
